FAERS Safety Report 5857247-7 (Version None)
Quarter: 2008Q3

REPORT INFORMATION
  Report Type: 
  Country: None (occurrence: None)
  Receive Date: 20080821
  Receipt Date: 20080806
  Transmission Date: 20090109
  Serious: Yes (Hospitalization)
  Sender: FDA-Public Use
  Company Number: 003640

PATIENT
  Age: 71 Year
  Sex: Male

DRUGS (1)
  1. PLETAL [Suspect]
     Indication: ARTERIOSCLEROSIS OBLITERANS
     Dosage: ORAL
     Route: 048

REACTIONS (3)
  - ANAEMIA [None]
  - HAEMODIALYSIS [None]
  - SPLENIC RUPTURE [None]
